FAERS Safety Report 10152280 (Version 1)
Quarter: 2014Q2

REPORT INFORMATION
  Report Type: Spontaneous
  Country: US (occurrence: US)
  Receive Date: 20140505
  Receipt Date: 20140505
  Transmission Date: 20141212
  Serious: No
  Sender: FDA-Public Use
  Company Number: US-009507513-1405USA001688

PATIENT
  Age: 27 Year
  Sex: Female

DRUGS (1)
  1. NUVARING [Suspect]
     Dosage: 1 RING/ 3 WEEKS IN,1 WEEK OUT
     Route: 067
     Dates: start: 2011, end: 20140430

REACTIONS (2)
  - Device expulsion [Unknown]
  - No adverse event [Unknown]
